FAERS Safety Report 5746604-5 (Version None)
Quarter: 2008Q2

REPORT INFORMATION
  Report Type: 
  Country: None (occurrence: None)
  Receive Date: 20080522
  Receipt Date: 20080514
  Transmission Date: 20081010
  Serious: Yes (Death)
  Sender: FDA-Public Use
  Company Number: US-GENENTECH-261116

PATIENT
  Sex: Male
  Weight: 60.317 kg

DRUGS (3)
  1. BEVACIZUMAB [Suspect]
     Indication: NON-SMALL CELL LUNG CANCER
     Dosage: 865 MG, Q3W
     Route: 042
     Dates: start: 20080422
  2. TAXOL [Suspect]
     Indication: NON-SMALL CELL LUNG CANCER
     Dosage: 330 MG, Q3W
     Route: 042
     Dates: start: 20080422
  3. CARBOPLATIN [Suspect]
     Indication: NON-SMALL CELL LUNG CANCER
     Dosage: 525 MG, Q3W
     Route: 042
     Dates: start: 20080422

REACTIONS (1)
  - DEATH [None]
